FAERS Safety Report 14861754 (Version 1)
Quarter: 2018Q2

REPORT INFORMATION
  Report Type: Spontaneous
  Country: US (occurrence: US)
  Receive Date: 20180423
  Receipt Date: 20180423
  Transmission Date: 20180711
  Serious: No
  Sender: FDA-Public Use
  Company Number: None

PATIENT
  Sex: Female

DRUGS (2)
  1. PROTOPIC [Suspect]
     Active Substance: TACROLIMUS
  2. LOCOID LIPOCREAM [Suspect]
     Active Substance: HYDROCORTISONE BUTYRATE

REACTIONS (1)
  - Treatment failure [None]
